FAERS Safety Report 23267571 (Version 1)
Quarter: 2023Q4

REPORT INFORMATION
  Report Type: Report from Study
  Country: US (occurrence: None)
  Receive Date: 20231206
  Receipt Date: 20231206
  Transmission Date: 20240110
  Serious: Yes (Hospitalization, Other)
  Sender: FDA-Public Use
  Company Number: 2023A272008

PATIENT
  Sex: Male

DRUGS (1)
  1. CALQUENCE [Suspect]
     Active Substance: ACALABRUTINIB
     Indication: Prostate cancer
     Route: 048

REACTIONS (4)
  - Swelling [Unknown]
  - Brain oedema [Unknown]
  - Fatigue [Unknown]
  - Dizziness [Unknown]
